FAERS Safety Report 9316279 (Version 1)
Quarter: 2013Q1

REPORT INFORMATION
  Report Type: Spontaneous
  Country: SG (occurrence: None)
  Receive Date: 20130109
  Receipt Date: 20130109
  Transmission Date: 20140127
  Serious: Yes (Hospitalization)
  Sender: FDA-Public Use
  Company Number: 2012SG000818

PATIENT
  Age: 57 Year
  Sex: Female
  Weight: 57.5 kg

DRUGS (2)
  1. PONATINIB [Suspect]
     Indication: CHRONIC MYELOID LEUKAEMIA
     Route: 048
     Dates: start: 20110714, end: 20120917
  2. AMLODIPINE [Concomitant]
     Dates: start: 20120906

REACTIONS (9)
  - Cerebrovascular accident [None]
  - Urinary tract infection [None]
  - Morganella test positive [None]
  - Enterococcus test positive [None]
  - Lacunar infarction [None]
  - Cerebral artery stenosis [None]
  - Cerebral artery stenosis [None]
  - Carotid artery stenosis [None]
  - Hypertension [None]
